FAERS Safety Report 8906522 (Version 1)
Quarter: 2012Q4

REPORT INFORMATION
  Report Type: 
  Country: US (occurrence: US)
  Receive Date: 20121113
  Receipt Date: 20121113
  Transmission Date: 20130627
  Serious: No
  Sender: FDA-Public Use
  Company Number: US-AMGEN-USASP2012011140

PATIENT
  Sex: Female

DRUGS (3)
  1. ENBREL [Suspect]
     Indication: RHEUMATOID ARTHRITIS
     Dosage: UNK
     Dates: start: 201006
  2. METHOTREXATE [Concomitant]
     Dosage: UNK
  3. ADVIL /00109201/ [Concomitant]
     Dosage: UNK

REACTIONS (5)
  - Surgery [Unknown]
  - Alopecia [Unknown]
  - Nausea [Unknown]
  - Fatigue [Unknown]
  - Rheumatoid arthritis [Not Recovered/Not Resolved]
